FAERS Safety Report 13736209 (Version 1)
Quarter: 2017Q3

REPORT INFORMATION
  Report Type: Spontaneous
  Country: FR (occurrence: FR)
  Receive Date: 20170710
  Receipt Date: 20170710
  Transmission Date: 20171127
  Serious: Yes (Other)
  Sender: FDA-Public Use
  Company Number: FR-ELI_LILLY_AND_COMPANY-FR201706012209

PATIENT
  Sex: Female

DRUGS (1)
  1. ALIMTA [Suspect]
     Active Substance: PEMETREXED DISODIUM
     Indication: NON-SMALL CELL LUNG CANCER
     Dosage: UNK UNK, CYCLICAL
     Route: 065

REACTIONS (6)
  - Erythema [Unknown]
  - Tongue haemorrhage [Unknown]
  - Mouth haemorrhage [Unknown]
  - Oropharyngitis fungal [Unknown]
  - Plicated tongue [Unknown]
  - Stomatitis [Unknown]
